FAERS Safety Report 18480836 (Version 2)
Quarter: 2020Q4

REPORT INFORMATION
  Report Type: Spontaneous
  Country: LT (occurrence: LT)
  Receive Date: 20201109
  Receipt Date: 20201113
  Transmission Date: 20210114
  Serious: Yes (Hospitalization)
  Sender: FDA-Public Use
  Company Number: LT-TOPROL-202000066

PATIENT
  Age: 71 Year
  Sex: Female

DRUGS (4)
  1. AGEN [Suspect]
     Active Substance: AMLODIPINE BESYLATE
     Indication: HYPERTENSION
     Dosage: NOT REGULAR
     Route: 048
     Dates: start: 202002
  2. NOLITERAX [Suspect]
     Active Substance: INDAPAMIDE\PERINDOPRIL ARGININE
     Indication: HYPERTENSION
     Dosage: 10 MG/2.5 MG, 1 TAB A DAY IN THE MORNING
     Route: 048
  3. BETALOC ZOK [Suspect]
     Active Substance: METOPROLOL SUCCINATE
     Indication: HYPERTENSION
     Dosage: 0.25 TAB A DAY
     Route: 048
  4. TENAXUM [Suspect]
     Active Substance: RILMENIDINE
     Indication: HYPERTENSION
     Dosage: NOT REGULAR
     Route: 048

REACTIONS (11)
  - Asthenia [Recovered/Resolved]
  - Blood pressure increased [Recovered/Resolved]
  - Arthralgia [Unknown]
  - Intentional product misuse [Unknown]
  - Pollakiuria [Unknown]
  - Underdose [Unknown]
  - Blood potassium decreased [Unknown]
  - Blood sodium decreased [Unknown]
  - Drug ineffective [Not Recovered/Not Resolved]
  - Nausea [Recovered/Resolved]
  - Insomnia [Unknown]

NARRATIVE: CASE EVENT DATE: 20200915
